FAERS Safety Report 6135989-6 (Version None)
Quarter: 2009Q1

REPORT INFORMATION
  Report Type: 
  Country: None (occurrence: None)
  Receive Date: 20090329
  Receipt Date: 20081215
  Transmission Date: 20090719
  Serious: No
  Sender: FDA-Public Use
  Company Number: US-BAUSCH-2008BL005262

PATIENT
  Age: 69 Year
  Sex: Male

DRUGS (2)
  1. LOTEMAX [Suspect]
     Indication: EYE DISCHARGE
     Route: 047
     Dates: start: 20081125, end: 20081125
  2. LOTEMAX [Suspect]
     Indication: EYE INFECTION
     Route: 047
     Dates: start: 20081125, end: 20081125

REACTIONS (2)
  - HYPERSENSITIVITY [None]
  - VERTIGO [None]
